FAERS Safety Report 24343892 (Version 1)
Quarter: 2024Q3

REPORT INFORMATION
  Report Type: Spontaneous
  Country: US (occurrence: None)
  Receive Date: 20240920
  Receipt Date: 20240920
  Transmission Date: 20241016
  Serious: Yes (Other)
  Sender: Public
  Company Number: None

PATIENT
  Age: 79 Year
  Sex: Female
  Weight: 54 kg

DRUGS (10)
  1. PROLIA [Suspect]
     Active Substance: DENOSUMAB
     Indication: Osteoporosis
     Dates: start: 20240806, end: 20240807
  2. DILTIAZEM [Concomitant]
     Active Substance: DILTIAZEM
  3. RAMIPRIL [Concomitant]
     Active Substance: RAMIPRIL
  4. TRIAMTERENE [Concomitant]
     Active Substance: TRIAMTERENE
  5. ELIQUIS [Concomitant]
     Active Substance: APIXABAN
  6. LATANOPROST [Concomitant]
     Active Substance: LATANOPROST
  7. AREDS-2 [Concomitant]
  8. MELATONIN [Concomitant]
     Active Substance: MELATONIN
  9. VITAMIN D [Concomitant]
     Active Substance: VITAMIN D NOS
  10. VITAMIN C [Concomitant]
     Active Substance: ASCORBIC ACID

REACTIONS (3)
  - Urticaria [None]
  - Blister infected [None]
  - Pruritus [None]

NARRATIVE: CASE EVENT DATE: 20240808
